FAERS Safety Report 24860954 (Version 1)
Quarter: 2025Q1

REPORT INFORMATION
  Report Type: Spontaneous
  Country: US (occurrence: US)
  Receive Date: 20250120
  Receipt Date: 20250120
  Transmission Date: 20250408
  Serious: No
  Sender: Kenvue
  Company Number: US-KENVUE-20250105669

PATIENT
  Age: 5 Decade
  Sex: Female

DRUGS (3)
  1. MENS ROGAINE EXTRA STRENGTH [Suspect]
     Active Substance: MINOXIDIL
     Indication: Alopecia
     Dosage: 1/2 CAPFUL, TWICE A DAY
     Route: 061
     Dates: start: 20241212
  2. low dose thyroid medication [Concomitant]
     Indication: Thyroid disorder
     Route: 065
  3. MENS ROGAINE [Concomitant]
     Active Substance: MINOXIDIL
     Indication: Alopecia
     Route: 061

REACTIONS (1)
  - Off label use [Unknown]

NARRATIVE: CASE EVENT DATE: 20241212
